FAERS Safety Report 16510220 (Version 1)
Quarter: 2019Q3

REPORT INFORMATION
  Report Type: Spontaneous
  Country: IT (occurrence: IT)
  Receive Date: 20190702
  Receipt Date: 20190702
  Transmission Date: 20191004
  Serious: Yes (Other)
  Sender: FDA-Public Use
  Company Number: IT-ACCORD-136147

PATIENT
  Age: 66 Year
  Sex: Male
  Weight: 81 kg

DRUGS (5)
  1. FUROSEMIDE. [Concomitant]
     Active Substance: FUROSEMIDE
  2. RANITIDINE. [Concomitant]
     Active Substance: RANITIDINE
  3. DEXAMETHASONE. [Concomitant]
     Active Substance: DEXAMETHASONE
  4. CISPLATIN. [Suspect]
     Active Substance: CISPLATIN
     Indication: RENAL CANCER
     Route: 042
     Dates: start: 20190418, end: 20190530
  5. GEMCITABINE/GEMCITABINE HYDROCHLORIDE [Suspect]
     Active Substance: GEMCITABINE\GEMCITABINE HYDROCHLORIDE
     Indication: RENAL CANCER
     Route: 042
     Dates: start: 20190418, end: 20190530

REACTIONS (4)
  - Anaemia [Recovering/Resolving]
  - Off label use [Unknown]
  - Neutropenia [Recovering/Resolving]
  - Leukopenia [Recovering/Resolving]

NARRATIVE: CASE EVENT DATE: 20190612
